FAERS Safety Report 7318676 (Version 22)
Quarter: 2012Q4

REPORT INFORMATION
  Report Type: 
  Country: US (occurrence: US)
  Receive Date: 20100312
  Receipt Date: 20121102
  Transmission Date: 20130627
  Serious: Yes (Hospitalization, Other)
  Sender: FDA-Public Use
  Company Number: PHEH2010US02799

PATIENT
  Sex: Female
  Weight: 96 kg

DRUGS (26)
  1. AREDIA [Suspect]
     Indication: BREAST CANCER METASTATIC
     Dosage: 90 mg, QMO
     Route: 042
  2. CHEMOTHERAPEUTICS [Suspect]
  3. ASPIRIN ^BAYER^ [Concomitant]
  4. FLUDROCORTISONE [Concomitant]
  5. ACTOS                                   /CAN/ [Concomitant]
  6. IRON [Concomitant]
  7. PULMICORT [Concomitant]
  8. DURAGESIC [Concomitant]
  9. CARISOPRODOL [Concomitant]
  10. LIPITOR                                 /UNK/ [Concomitant]
  11. PROTONIX ^PHARMACIA^ [Concomitant]
  12. REMERON [Concomitant]
  13. CARDIZEM [Concomitant]
  14. ANASTROZOLE [Concomitant]
  15. PAXIL [Concomitant]
     Dosage: 20 mg, QD
  16. NEXIUM                             /01479302/ [Concomitant]
     Dosage: 40 mg, QD
  17. ZOCOR [Concomitant]
  18. DARVOCET-N [Concomitant]
     Dosage: 2 DF, PRN
  19. CLARITIN [Concomitant]
     Dosage: 10 mg, PRN
  20. MOTRIN [Concomitant]
  21. MIDRIN [Concomitant]
  22. DURADRIN [Concomitant]
  23. MORPHINE [Concomitant]
  24. LOVENOX [Concomitant]
  25. FLOVENT [Concomitant]
  26. PREDNISONE [Concomitant]

REACTIONS (98)
  - Osteonecrosis of jaw [Unknown]
  - Pain [Unknown]
  - Infection [Unknown]
  - Deformity [Unknown]
  - Injury [Unknown]
  - Diabetes mellitus [Unknown]
  - Asthma [Unknown]
  - Cardiac disorder [Unknown]
  - Metastases to bone [Unknown]
  - Back pain [Unknown]
  - Musculoskeletal chest pain [Unknown]
  - Sinusitis [Unknown]
  - Headache [Unknown]
  - Emphysema [Unknown]
  - Chronic obstructive pulmonary disease [Unknown]
  - Myocardial infarction [Unknown]
  - Migraine [Unknown]
  - Osteomyelitis [Unknown]
  - Dental caries [Unknown]
  - Abdominal pain [Unknown]
  - Angiomyolipoma [Unknown]
  - Arteriosclerosis [Unknown]
  - Pectus excavatum [Unknown]
  - Intervertebral disc degeneration [Unknown]
  - Diverticulum [Unknown]
  - Hydronephrosis [Unknown]
  - Hypotension [Unknown]
  - Blood cholesterol increased [Unknown]
  - Angina pectoris [Unknown]
  - Gastrooesophageal reflux disease [Unknown]
  - Exposed bone in jaw [Unknown]
  - Dyspnoea [Unknown]
  - Rhinitis [Unknown]
  - Ear pain [Unknown]
  - Haematuria [Unknown]
  - Dysphagia [Unknown]
  - Haemangioma [Unknown]
  - Pulmonary embolism [Unknown]
  - Osteoarthritis [Unknown]
  - Gallbladder polyp [Unknown]
  - Bronchospasm [Unknown]
  - Venous thrombosis limb [Unknown]
  - Coronary artery disease [Unknown]
  - Joint ankylosis [Unknown]
  - Adenocarcinoma [Unknown]
  - Musculoskeletal stiffness [Unknown]
  - Swelling [Unknown]
  - Erythema [Unknown]
  - Oesophagitis [Unknown]
  - Lung neoplasm malignant [Unknown]
  - Bronchitis [Unknown]
  - Lipids increased [Unknown]
  - Depression [Unknown]
  - Osteoporosis [Unknown]
  - Seborrhoeic keratosis [Unknown]
  - Melanocytic naevus [Unknown]
  - Preauricular cyst [Unknown]
  - Arrhythmia [Unknown]
  - Hypertension [Unknown]
  - Pneumonia [Unknown]
  - Cholecystitis [Unknown]
  - Hydrocholecystis [Unknown]
  - Cholelithiasis [Unknown]
  - Leukocytosis [Unknown]
  - Abdominal tenderness [Unknown]
  - Abdominal rigidity [Unknown]
  - Wound [Recovering/Resolving]
  - Sinus tachycardia [Unknown]
  - Pancreatitis [Unknown]
  - Ear haemorrhage [Unknown]
  - Respiratory failure [Unknown]
  - Anaemia [Unknown]
  - Palpitations [Unknown]
  - Dysuria [Unknown]
  - Urinary hesitation [Unknown]
  - Urine flow decreased [Unknown]
  - Urinary incontinence [Unknown]
  - Urinary retention [Unknown]
  - Urinary tract infection [Unknown]
  - Gait disturbance [Not Recovered/Not Resolved]
  - Neck pain [Unknown]
  - Hypoaesthesia [Unknown]
  - Contusion [Unknown]
  - Excoriation [Unknown]
  - Pollakiuria [Unknown]
  - Micturition urgency [Unknown]
  - Intervertebral disc displacement [Unknown]
  - Lyme disease [Unknown]
  - Metastases to spine [Unknown]
  - Interstitial lung disease [Unknown]
  - Atelectasis [Unknown]
  - Bullous lung disease [Unknown]
  - Metastases to nasal sinuses [Unknown]
  - Capsular contracture associated with breast implant [Unknown]
  - Oral cavity fistula [Unknown]
  - Renal failure [Unknown]
  - Pulmonary mass [Unknown]
  - Chest pain [Unknown]
